FAERS Safety Report 24369175 (Version 1)
Quarter: 2024Q3

REPORT INFORMATION
  Report Type: Spontaneous
  Country: US (occurrence: US)
  Receive Date: 20240927
  Receipt Date: 20240927
  Transmission Date: 20241017
  Serious: Yes (Hospitalization)
  Sender: LUPIN
  Company Number: US-LUPIN PHARMACEUTICALS INC.-2024-09257

PATIENT
  Age: 64 Year
  Sex: Male

DRUGS (17)
  1. SILDENAFIL [Interacting]
     Active Substance: SILDENAFIL
     Indication: Product used for unknown indication
     Dosage: 100 MILLIGRAM, PRN (ONCE WEEKLY AS NEEDED)
     Route: 065
  2. POTASSIUM CHLORIDE [Interacting]
     Active Substance: POTASSIUM CHLORIDE
     Indication: Product used for unknown indication
     Dosage: 10 MILLIEQUIVALENT, QD
     Route: 065
  3. BUPROPION [Interacting]
     Active Substance: BUPROPION
     Indication: Product used for unknown indication
     Dosage: 300 MILLIGRAM, QD
     Route: 065
  4. GABAPENTIN [Interacting]
     Active Substance: GABAPENTIN
     Indication: Product used for unknown indication
     Dosage: 600 MILLIGRAM, BID
     Route: 065
  5. ALBUTEROL SULFATE [Interacting]
     Active Substance: ALBUTEROL SULFATE
     Indication: Product used for unknown indication
     Dosage: UNK (INHALER)
     Route: 065
  6. FUROSEMIDE [Interacting]
     Active Substance: FUROSEMIDE
     Indication: Product used for unknown indication
     Dosage: 20 MILLIGRAM, QD
     Route: 065
  7. PANTOPRAZOLE [Interacting]
     Active Substance: PANTOPRAZOLE
     Indication: Gastrooesophageal reflux disease
     Dosage: 40 MILLIGRAM, BID
     Route: 048
  8. PANTOPRAZOLE [Interacting]
     Active Substance: PANTOPRAZOLE
     Dosage: 40 MILLIGRAM, QD
     Route: 048
  9. OMEPRAZOLE [Suspect]
     Active Substance: OMEPRAZOLE
     Indication: Product used for unknown indication
     Dosage: 20 MG, QD
     Route: 065
  10. ACYCLOVIR [Interacting]
     Active Substance: ACYCLOVIR
     Indication: Product used for unknown indication
     Dosage: 200 MILLIGRAM, QD
     Route: 065
  11. FERROUS SULFATE [Interacting]
     Active Substance: FERROUS SULFATE
     Indication: Product used for unknown indication
     Dosage: 324 MILLIGRAM, QD
     Route: 065
  12. TESTOSTERONE [Interacting]
     Active Substance: TESTOSTERONE
     Indication: Product used for unknown indication
     Dosage: 200 MG/ML, Q2WEEKS
     Route: 030
  13. DOCUSATE [Interacting]
     Active Substance: DOCUSATE
     Indication: Product used for unknown indication
     Dosage: 240 MILLIGRAM, QD
     Route: 065
  14. CHOLECALCIFEROL [Interacting]
     Active Substance: CHOLECALCIFEROL
     Indication: Product used for unknown indication
     Dosage: 200 UNIT, QD
     Route: 065
  15. ALBUTEROL\IPRATROPIUM [Interacting]
     Active Substance: ALBUTEROL\IPRATROPIUM
     Indication: Product used for unknown indication
     Dosage: UNK
     Route: 065
  16. SOFOSBUVIR\VELPATASVIR [Interacting]
     Active Substance: SOFOSBUVIR\VELPATASVIR
     Indication: Product used for unknown indication
     Dosage: 1 DOSAGE FORM, QD
  17. BUPRENORPHINE\NALOXONE [Interacting]
     Active Substance: BUPRENORPHINE\NALOXONE
     Indication: Drug dependence
     Dosage: UNK UNK, BID (BUPRENORPHINE 8 MG/NALOXONE 2 MG)
     Route: 060

REACTIONS (2)
  - Mental status changes [Unknown]
  - Drug interaction [Unknown]
